FAERS Safety Report 8988776 (Version 6)
Quarter: 2013Q2

REPORT INFORMATION
  Report Type: Spontaneous
  Country: CA (occurrence: CA)
  Receive Date: 20121228
  Receipt Date: 20130529
  Transmission Date: 20140414
  Serious: Yes (Other)
  Sender: FDA-Public Use
  Company Number: CA-ROCHE-1174110

PATIENT
  Age: 34 Year
  Sex: Female

DRUGS (2)
  1. XOLAIR [Suspect]
     Indication: ASTHMA
     Dosage: THERAPY START DATE: 24/SEP/2012
     Route: 058
  2. XOLAIR [Suspect]
     Dosage: THERAPY START DATE: 22/OCT/2012
     Route: 058

REACTIONS (10)
  - Intestinal mass [Unknown]
  - Neoplasm malignant [Unknown]
  - Therapeutic response decreased [Unknown]
  - Vitreous floaters [Not Recovered/Not Resolved]
  - Hypoaesthesia [Not Recovered/Not Resolved]
  - Feeling abnormal [Unknown]
  - Myalgia [Recovered/Resolved]
  - Injection site pain [Unknown]
  - Dizziness [Not Recovered/Not Resolved]
  - Pain in extremity [Recovering/Resolving]
